FAERS Safety Report 8396463-X (Version None)
Quarter: 2012Q2

REPORT INFORMATION
  Report Type: 
  Country: None (occurrence: None)
  Receive Date: 20120530
  Receipt Date: 20120521
  Transmission Date: 20120825
  Serious: Yes (Death, Hospitalization, Other)
  Sender: FDA-Public Use
  Company Number: JP-ALEXION PHARMACEUTICALS INC.-A201101783

PATIENT
  Age: 71 Year
  Sex: Male

DRUGS (5)
  1. SOLIRIS [Suspect]
     Indication: PAROXYSMAL NOCTURNAL HAEMOGLOBINURIA
     Dosage: 900 MG, Q2W
     Dates: start: 20110914, end: 20111109
  2. BLOOD TRANSFUSION, AUXILIARY PRODUCTS [Concomitant]
     Dosage: 8 TIMES 52 UNITS
  3. PREDNISOLONE [Concomitant]
     Dosage: 50 MG, QD
     Dates: start: 20110909
  4. NESPO [Concomitant]
     Dosage: 150 ?G, QW
     Dates: start: 20110525
  5. MEROPENEM [Concomitant]
     Dosage: 0.5 G, QD
     Dates: start: 20110909

REACTIONS (4)
  - PAROXYSMAL NOCTURNAL HAEMOGLOBINURIA [None]
  - CONDITION AGGRAVATED [None]
  - SEPSIS [None]
  - INFECTIOUS PLEURAL EFFUSION [None]
